FAERS Safety Report 8667880 (Version 2)
Quarter: 2012Q4

REPORT INFORMATION
  Report Type: Report from Study
  Country: US (occurrence: US)
  Receive Date: 20120717
  Receipt Date: 20120926
  Transmission Date: 20130627
  Serious: Yes (Hospitalization)
  Sender: FDA-Public Use
  Company Number: US-JNJFOC-20120707005

PATIENT
  Age: 64 Year
  Sex: Female
  Weight: 143.9 kg

DRUGS (12)
  1. REMICADE [Suspect]
     Indication: PSORIASIS
     Route: 042
     Dates: start: 20120109
  2. REMICADE [Suspect]
     Indication: PSORIASIS
     Route: 042
     Dates: start: 20111123
  3. REMICADE [Suspect]
     Indication: PSORIASIS
     Route: 042
     Dates: start: 20110627
  4. REMICADE [Suspect]
     Indication: PSORIASIS
     Route: 042
     Dates: start: 20120604
  5. REMICADE [Suspect]
     Indication: PSORIASIS
     Route: 042
     Dates: start: 20110211
  6. REMICADE [Suspect]
     Indication: PSORIASIS
     Route: 042
     Dates: start: 20101228
  7. REMICADE [Suspect]
     Indication: PSORIASIS
     Route: 042
     Dates: start: 20100928
  8. REMICADE [Suspect]
     Indication: PSORIASIS
     Route: 042
     Dates: start: 20100203
  9. REMICADE [Suspect]
     Indication: PSORIASIS
     Route: 042
     Dates: start: 20091027
  10. REMICADE [Suspect]
     Indication: PSORIASIS
     Route: 042
     Dates: start: 20071010, end: 201206
  11. METHOTREXATE [Concomitant]
     Dates: start: 198001, end: 20110518
  12. TACLONEX [Concomitant]

REACTIONS (1)
  - Deep vein thrombosis [Recovered/Resolved]
